FAERS Safety Report 5015377-6 (Version None)
Quarter: 2006Q2

REPORT INFORMATION
  Report Type: 
  Country: None (occurrence: None)
  Receive Date: 20060530
  Receipt Date: 20060530
  Transmission Date: 20061013
  Serious: Yes (Other)
  Sender: FDA-Public Use
  Company Number: None

PATIENT
  Age: 66 Year
  Sex: Female

DRUGS (10)
  1. FENTANYL [Suspect]
     Indication: PAIN
     Dosage: 50 MCG TRANSDERMAL
     Route: 062
     Dates: start: 20060113, end: 20060213
  2. TYLOX [Concomitant]
  3. PRILOSEC [Concomitant]
  4. M.V.I. [Concomitant]
  5. TOPROL-XL [Concomitant]
  6. ALTACE [Concomitant]
  7. NEURONTIN [Concomitant]
  8. ASPIRIN [Concomitant]
  9. ESTROGENS SOL/INJ [Concomitant]
  10. EFFEXOR [Concomitant]

REACTIONS (2)
  - BREAKTHROUGH PAIN [None]
  - THERAPEUTIC RESPONSE UNEXPECTED WITH DRUG SUBSTITUTION [None]
